FAERS Safety Report 9159473 (Version 3)
Quarter: 2014Q2

REPORT INFORMATION
  Report Type: Spontaneous
  Country: US (occurrence: US)
  Receive Date: 20130313
  Receipt Date: 20140414
  Transmission Date: 20141212
  Serious: Yes (Hospitalization)
  Sender: FDA-Public Use
  Company Number: US-B.I. PHARMACEUTICALS,INC./RIDGEFIELD-2013-BI-06145BP

PATIENT
  Age: 76 Year
  Sex: Female
  Weight: 79.38 kg

DRUGS (13)
  1. PRADAXA [Suspect]
     Indication: ATRIAL FIBRILLATION
     Dosage: 300 MG
     Route: 048
     Dates: start: 20101206, end: 20110328
  2. ASPIRIN [Concomitant]
     Dosage: 81 MG
     Route: 048
  3. MULTIVITAMIN [Concomitant]
     Route: 048
  4. METOPROLOL [Concomitant]
     Route: 065
  5. LOVASTATIN [Concomitant]
     Dosage: 40 MG
     Route: 048
  6. PREVACID [Concomitant]
     Dosage: 30 MG
     Route: 048
  7. LEVEMIR [Concomitant]
     Dosage: 20 U
     Route: 058
  8. LEVOTHYROXINE [Concomitant]
     Dosage: 125 MCG
     Route: 048
  9. VITAMIN B6 [Concomitant]
     Dosage: 100 MCG
     Route: 048
  10. VITAMIN B12 [Concomitant]
     Route: 065
  11. POTASSIUM CHLORIDE [Concomitant]
     Route: 065
  12. METFORMIN [Concomitant]
     Route: 065
  13. BENAZEPRIL [Concomitant]
     Route: 065

REACTIONS (1)
  - Gastrointestinal haemorrhage [Recovered/Resolved]
